FAERS Safety Report 5440487-9 (Version None)
Quarter: 2007Q3

REPORT INFORMATION
  Report Type: 
  Country: None (occurrence: None)
  Receive Date: 20070831
  Receipt Date: 20070822
  Transmission Date: 20080115
  Serious: Yes (Disabling, Other)
  Sender: FDA-Public Use
  Company Number: JP-ROCHE-502818

PATIENT
  Age: 74 Year
  Sex: Female
  Weight: 44 kg

DRUGS (10)
  1. PEGASYS [Suspect]
     Route: 058
     Dates: start: 20050521, end: 20050528
  2. PEGASYS [Suspect]
     Route: 058
     Dates: start: 20050604, end: 20061218
  3. PEGASYS [Suspect]
     Route: 058
     Dates: start: 20070227, end: 20070306
  4. URSODESOXYCHOLIC ACID [Concomitant]
     Dosage: DRUG NAME REPORTED AS URDESTON.
     Route: 048
  5. DIOVAN [Concomitant]
     Route: 048
  6. CALFINA [Concomitant]
     Route: 048
  7. ASPARA-CA [Concomitant]
     Dosage: GENERIC NAME REPORTED AS CALCIUM L - ASPARTATE)
     Route: 048
  8. CLOTIAZEPAM [Concomitant]
     Dosage: DRUG NAME REPORTED AS RILMIN.
     Route: 048
  9. EBASTEL [Concomitant]
     Route: 048
  10. TOKISHAKUYAKUSAN [Concomitant]
     Route: 048

REACTIONS (5)
  - ANAEMIA [None]
  - CEREBRAL INFARCTION [None]
  - PARKINSONISM [None]
  - PLATELET COUNT DECREASED [None]
  - SUICIDE ATTEMPT [None]
